FAERS Safety Report 8426836-8 (Version None)
Quarter: 2012Q2

REPORT INFORMATION
  Report Type: 
  Country: None (occurrence: None)
  Receive Date: 20120601
  Receipt Date: 20120518
  Transmission Date: 20120825
  Serious: Yes (Hospitalization, Other)
  Sender: FDA-Public Use
  Company Number: 2012SP027023

PATIENT
  Sex: Female

DRUGS (4)
  1. PEG-INTRON [Suspect]
     Indication: HEPATITIS C
     Dosage: 0.4 ML
     Dates: start: 20120417
  2. PEG-INTRON [Suspect]
     Indication: HEPATITIS C
     Dosage: 0.4 ML
     Dates: start: 20120320, end: 20120417
  3. VICTRELIS [Suspect]
     Indication: HEPATITIS C
     Dates: start: 20120418, end: 20120420
  4. RIBAVIRIN [Suspect]
     Indication: HEPATITIS C
     Dates: start: 20120320

REACTIONS (9)
  - RED BLOOD CELL COUNT DECREASED [None]
  - MALAISE [None]
  - NAUSEA [None]
  - BRONCHITIS [None]
  - DIZZINESS [None]
  - INCREASED UPPER AIRWAY SECRETION [None]
  - PRODUCTIVE COUGH [None]
  - WHITE BLOOD CELL COUNT DECREASED [None]
  - RESPIRATORY DISORDER [None]
